APPROVED DRUG PRODUCT: SULINDAC
Active Ingredient: SULINDAC
Strength: 200MG
Dosage Form/Route: TABLET;ORAL
Application: A071795 | Product #001 | TE Code: AB
Applicant: WATSON LABORATORIES INC
Approved: Apr 3, 1990 | RLD: No | RS: Yes | Type: RX